FAERS Safety Report 7523421-7 (Version None)
Quarter: 2011Q2

REPORT INFORMATION
  Report Type: 
  Country: None (occurrence: None)
  Receive Date: 20110603
  Receipt Date: 20110526
  Transmission Date: 20111010
  Serious: Yes (Other)
  Sender: FDA-Public Use
  Company Number: B0724052A

PATIENT
  Sex: Male

DRUGS (1)
  1. DUODART [Suspect]
     Route: 065
     Dates: start: 20110106, end: 20110510

REACTIONS (3)
  - LIBIDO DECREASED [None]
  - AZOOSPERMIA [None]
  - ERECTILE DYSFUNCTION [None]
